FAERS Safety Report 20739991 (Version 1)
Quarter: 2022Q2

REPORT INFORMATION
  Report Type: Spontaneous
  Country: BE (occurrence: BE)
  Receive Date: 20220422
  Receipt Date: 20220422
  Transmission Date: 20220721
  Serious: Yes (Other)
  Sender: FDA-Public Use
  Company Number: BE-SLATE RUN PHARMACEUTICALS-22BE001037

PATIENT

DRUGS (8)
  1. VORICONAZOLE [Suspect]
     Active Substance: VORICONAZOLE
     Indication: Aspergillus infection
     Dosage: 200 MILLIGRAM, Q 12 HR
     Route: 048
  2. VORICONAZOLE [Suspect]
     Active Substance: VORICONAZOLE
     Dosage: LOADING DOSE
     Route: 048
     Dates: start: 201906
  3. FLUCLOXACILLIN [Interacting]
     Active Substance: FLUCLOXACILLIN
     Indication: Endocarditis
     Dosage: 2 GRAM, Q 4 HR
     Dates: start: 2019
  4. FLUCLOXACILLIN [Interacting]
     Active Substance: FLUCLOXACILLIN
     Indication: Staphylococcal sepsis
     Dosage: 2 GRAM, Q 4 HR
     Dates: start: 201907
  5. POSACONAZOLE [Interacting]
     Active Substance: POSACONAZOLE
     Indication: Aspergillus infection
     Dosage: 300 MILLIGRAM, QD
     Route: 048
     Dates: start: 2019
  6. POSACONAZOLE [Interacting]
     Active Substance: POSACONAZOLE
     Dosage: UNK
     Dates: start: 2019
  7. CYCLOSPORINE [Interacting]
     Active Substance: CYCLOSPORINE
     Indication: Immunosuppression
     Dosage: UNK
     Dates: start: 2019
  8. VALGANCICLOVIR [Concomitant]
     Active Substance: VALGANCICLOVIR
     Indication: Prophylaxis

REACTIONS (5)
  - Optic ischaemic neuropathy [Recovered/Resolved]
  - Staphylococcal sepsis [Recovered/Resolved]
  - Endocarditis [Recovered/Resolved]
  - Drug level decreased [Recovered/Resolved]
  - Drug interaction [Recovered/Resolved]
